FAERS Safety Report 10877144 (Version 1)
Quarter: 2015Q1

REPORT INFORMATION
  Report Type: Spontaneous
  Country: US (occurrence: US)
  Receive Date: 20150302
  Receipt Date: 20150302
  Transmission Date: 20150721
  Serious: Yes (Other)
  Sender: FDA-Public Use
  Company Number: US-AUROBINDO-AUR-APL-2015-01598

PATIENT
  Age: 75 Year
  Sex: Female

DRUGS (1)
  1. CLINDAMYCIN [Suspect]
     Active Substance: CLINDAMYCIN\CLINDAMYCIN PHOSPHATE
     Indication: URINARY TRACT INFECTION
     Dosage: UNK
     Route: 048

REACTIONS (9)
  - Hepatitis cholestatic [Recovering/Resolving]
  - Inflammation [Recovering/Resolving]
  - Pruritus [Recovering/Resolving]
  - Blood bilirubin increased [Recovering/Resolving]
  - Jaundice [Recovering/Resolving]
  - Fatigue [Recovering/Resolving]
  - Ocular icterus [Recovering/Resolving]
  - Transaminases increased [Recovering/Resolving]
  - International normalised ratio increased [Recovering/Resolving]
